FAERS Safety Report 11302202 (Version 1)
Quarter: 2015Q3

REPORT INFORMATION
  Report Type: Spontaneous
  Country: US (occurrence: None)
  Receive Date: 20150723
  Receipt Date: 20150723
  Transmission Date: 20151125
  Serious: Yes (Disabling)
  Sender: FDA-Public Use
  Company Number: None

PATIENT
  Age: 38 Year
  Sex: Female
  Weight: 74.84 kg

DRUGS (8)
  1. CITALOPRAM [Concomitant]
     Active Substance: CITALOPRAM HYDROBROMIDE
  2. CREOL [Concomitant]
  3. VITAMIN B [Concomitant]
     Active Substance: VITAMIN B
  4. OMEPRAZOLE. [Concomitant]
     Active Substance: OMEPRAZOLE
  5. MULTI VITAMIN [Concomitant]
     Active Substance: VITAMINS
  6. HUMIRA [Suspect]
     Active Substance: ADALIMUMAB
     Indication: CROHN^S DISEASE
     Dosage: 2 EVERY TWO WEEKS GIVEN INTO/UNDER THE SKIN
     Dates: start: 20141011, end: 20141227
  7. ADDER ALL [Concomitant]
  8. VITAMIN D [Concomitant]
     Active Substance: CHOLECALCIFEROL

REACTIONS (5)
  - Wound secretion [None]
  - Alopecia [None]
  - Skin exfoliation [None]
  - Skin lesion [None]
  - Burning sensation [None]

NARRATIVE: CASE EVENT DATE: 20141220
